FAERS Safety Report 6975809-0 (Version None)
Quarter: 2010Q3

REPORT INFORMATION
  Report Type: 
  Country: None (occurrence: None)
  Receive Date: 20100910
  Receipt Date: 20100830
  Transmission Date: 20110219
  Serious: Yes (Hospitalization, Other)
  Sender: FDA-Public Use
  Company Number: US-TYCO HEALTHCARE/MALLINCKRODT-T200801873

PATIENT

DRUGS (20)
  1. OPTIMARK [Suspect]
     Indication: ANGIOGRAM
     Dosage: UNK, SINGLE
     Route: 042
     Dates: start: 20040927, end: 20040927
  2. OPTIMARK [Suspect]
     Indication: NUCLEAR MAGNETIC RESONANCE IMAGING
     Dosage: UNK, SINGLE
     Route: 042
     Dates: start: 20040927, end: 20040927
  3. OMNISCAN [Suspect]
     Indication: ANGIOGRAM
     Dates: start: 20051012, end: 20051012
  4. GADOLINIUM [Suspect]
     Indication: VENOGRAM
     Dates: start: 20041123, end: 20041123
  5. SENSIPAR [Concomitant]
     Indication: THYROID DISORDER
     Dosage: 30 MG, QD
  6. LIPITOR [Concomitant]
     Indication: BLOOD CHOLESTEROL
     Dosage: 40 MG, QD
     Dates: start: 19900101
  7. ZOLOFT [Concomitant]
     Indication: DEPRESSION
     Dosage: 100 MG, QD
  8. ZOLOFT [Concomitant]
     Indication: ATRIAL FIBRILLATION
  9. NEXIUM [Concomitant]
     Indication: GASTROOESOPHAGEAL REFLUX DISEASE
     Dosage: 40 MG, QD
  10. NEXIUM [Concomitant]
     Indication: HIATUS HERNIA
  11. ZETIA [Concomitant]
     Indication: BLOOD CHOLESTEROL
     Dosage: 10 MG, UNK
     Dates: start: 19900101
  12. COUMADIN [Concomitant]
     Indication: ANTICOAGULANT THERAPY
     Dosage: 6 MG, UNK
     Dates: start: 20060101
  13. COUMADIN [Concomitant]
     Indication: PROPHYLAXIS
  14. MULTI-VITAMINS [Concomitant]
     Indication: IMMUNE SYSTEM DISORDER
     Dates: start: 20050101
  15. VITAMIN A [Concomitant]
     Indication: SUPPLEMENTATION THERAPY
  16. ZEMPLAR [Concomitant]
     Indication: RED BLOOD CELL ABNORMALITY
     Dates: start: 20050101
  17. CYCLOSPORINE [Concomitant]
     Indication: KIDNEY TRANSPLANT REJECTION
     Dosage: UNK
     Dates: start: 19890101, end: 20050101
  18. TOPROL-XL [Concomitant]
     Indication: BLOOD PRESSURE
     Dosage: UNK
     Dates: start: 19900101, end: 20050101
  19. ATENOLOL [Concomitant]
     Indication: BLOOD PRESSURE
     Dosage: UNK
     Dates: start: 19900101, end: 20050101
  20. PREDNISONE [Concomitant]
     Indication: ANTI-INFECTIVE THERAPY
     Dosage: UNK
     Dates: start: 19890101, end: 20080101

REACTIONS (21)
  - ANAEMIA [None]
  - ARTHRALGIA [None]
  - ASTHENIA [None]
  - CARDIAC FAILURE CONGESTIVE [None]
  - CARDIAC VALVE DISEASE [None]
  - DEPRESSION [None]
  - DIABETIC ULCER [None]
  - DRUG TOXICITY [None]
  - DYSPNOEA EXERTIONAL [None]
  - ELECTROCARDIOGRAM QT PROLONGED [None]
  - FATIGUE [None]
  - FLUID OVERLOAD [None]
  - FLUID RETENTION [None]
  - GASTROINTESTINAL HAEMORRHAGE [None]
  - HYPOTENSION [None]
  - MUSCULOSKELETAL PAIN [None]
  - NEPHROGENIC SYSTEMIC FIBROSIS [None]
  - OFF LABEL USE [None]
  - PNEUMONIA [None]
  - SLEEP APNOEA SYNDROME [None]
  - WEIGHT DECREASED [None]
